FAERS Safety Report 16625357 (Version 1)
Quarter: 2019Q3

REPORT INFORMATION
  Report Type: Spontaneous
  Country: US (occurrence: US)
  Receive Date: 20190612
  Receipt Date: 20190612
  Transmission Date: 20191004
  Serious: Yes (Hospitalization)
  Sender: FDA-Public Use
  Company Number: None

PATIENT
  Age: 13 Year
  Sex: Female

DRUGS (1)
  1. BOTOX [Suspect]
     Active Substance: ONABOTULINUMTOXINA
     Indication: CEREBRAL PALSY
     Dosage: ?          OTHER FREQUENCY:Q3M;?
     Route: 030
     Dates: start: 201806

REACTIONS (3)
  - Urinary tract infection [None]
  - Respiratory distress [None]
  - Secretion discharge [None]

NARRATIVE: CASE EVENT DATE: 201905
